FAERS Safety Report 8355120-6 (Version None)
Quarter: 2012Q2

REPORT INFORMATION
  Report Type: 
  Country: None (occurrence: None)
  Receive Date: 20120511
  Receipt Date: 20120503
  Transmission Date: 20120825
  Serious: Yes (Hospitalization)
  Sender: FDA-Public Use
  Company Number: SE-JNJFOC-20120405641

PATIENT
  Age: 63 Year
  Sex: Female

DRUGS (2)
  1. REMICADE [Suspect]
     Indication: MUSCULOSKELETAL PAIN
     Route: 042
     Dates: start: 19990101, end: 20120301
  2. METHOTREXATE [Suspect]
     Indication: MUSCULOSKELETAL PAIN
     Dates: start: 19960101

REACTIONS (1)
  - CERVIX CARCINOMA [None]
